FAERS Safety Report 9989904 (Version 1)
Quarter: 2013Q4

REPORT INFORMATION
  Report Type: Spontaneous
  Country: US (occurrence: None)
  Receive Date: 20131115
  Receipt Date: 20131115
  Transmission Date: 20140711
  Serious: Yes (Hospitalization, Other)
  Sender: FDA-Public Use
  Company Number: ADR-2013-02024

PATIENT
  Sex: Female

DRUGS (2)
  1. BACLOFEN [Suspect]
  2. MORPHINE [Suspect]

REACTIONS (3)
  - Device failure [None]
  - Fatigue [None]
  - Hernia [None]
